FAERS Safety Report 4791073-5 (Version None)
Quarter: 2005Q4

REPORT INFORMATION
  Report Type: 
  Country: None (occurrence: None)
  Receive Date: 20051005
  Receipt Date: 20050920
  Transmission Date: 20060501
  Serious: Yes (Hospitalization)
  Sender: FDA-Public Use
  Company Number: DSA_27134_2005

PATIENT
  Age: 81 Year
  Sex: Male

DRUGS (5)
  1. TEMESTA [Suspect]
     Dosage: 1 MG Q DAY PO
     Route: 048
  2. ALLOPURINOL [Suspect]
     Indication: GOUT
     Dosage: 200 MG Q DAY PO
     Route: 048
  3. AMLOR [Suspect]
     Indication: HYPERTENSION
     Dosage: 5 MG Q DAY PO
     Route: 048
  4. TADENAN [Suspect]
     Dosage: 50 MG BID PO
     Route: 048
  5. TANAKAN [Concomitant]

REACTIONS (3)
  - DERMATITIS [None]
  - HYPONATRAEMIA [None]
  - VASCULITIS NECROTISING [None]
